FAERS Safety Report 4581120-8 (Version None)
Quarter: 2005Q1

REPORT INFORMATION
  Report Type: 
  Country: None (occurrence: None)
  Receive Date: 20050214
  Receipt Date: 20040805
  Transmission Date: 20050727
  Serious: No
  Sender: FDA-Public Use
  Company Number: US-GLAXOSMITHKLINE-A0521627A

PATIENT
  Age: 8 Year
  Sex: Female

DRUGS (3)
  1. LAMICTAL [Suspect]
     Dosage: 2MG SEE DOSAGE TEXT
     Route: 048
     Dates: start: 20031101
  2. DEPAKOTE [Concomitant]
     Dosage: 250MG TWICE PER DAY
     Route: 065
     Dates: start: 20020101
  3. ATIVAN [Concomitant]
     Indication: DRUG USE FOR UNKNOWN INDICATION
     Dosage: 1MG AS REQUIRED
     Route: 065

REACTIONS (5)
  - BUTTOCK PAIN [None]
  - HEADACHE [None]
  - HYPERACUSIS [None]
  - PAIN [None]
  - PAIN IN EXTREMITY [None]
